FAERS Safety Report 9380093 (Version 1)
Quarter: 2013Q3

REPORT INFORMATION
  Report Type: Spontaneous
  Country: US (occurrence: US)
  Receive Date: 20130702
  Receipt Date: 20130702
  Transmission Date: 20140515
  Serious: No
  Sender: FDA-Public Use
  Company Number: US-ROXANE LABORATORIES, INC.-2013-RO-01025RO

PATIENT
  Age: 7 Year
  Sex: Female

DRUGS (3)
  1. OXCARBAZEPINE [Suspect]
     Indication: EPILEPSY
     Dosage: 10 ML
     Route: 048
     Dates: start: 20130416, end: 20130619
  2. MULTIVITAMIN [Concomitant]
  3. PROBIOTIC [Concomitant]

REACTIONS (4)
  - Vomiting [Not Recovered/Not Resolved]
  - Lethargy [Not Recovered/Not Resolved]
  - Abdominal pain upper [Not Recovered/Not Resolved]
  - Expired drug administered [Recovered/Resolved]
